FAERS Safety Report 13351513 (Version 1)
Quarter: 2017Q1

REPORT INFORMATION
  Report Type: Other
  Country: NO (occurrence: NO)
  Receive Date: 20170320
  Receipt Date: 20170320
  Transmission Date: 20170429
  Serious: Yes (Other)
  Sender: FDA-Public Use
  Company Number: NO-BECTON DICKINSON-2017BDN00093

PATIENT
  Age: 62 Year
  Sex: Female

DRUGS (8)
  1. METFORMIN [Concomitant]
     Active Substance: METFORMIN HYDROCHLORIDE
  2. FENTANYL. [Suspect]
     Active Substance: FENTANYL
     Indication: ANAESTHESIA PROCEDURE
     Dosage: 0.05 MG, UNK
     Route: 051
     Dates: start: 20170126, end: 20170126
  3. PROPOFOL. [Suspect]
     Active Substance: PROPOFOL
     Indication: ANAESTHESIA PROCEDURE
     Dosage: 194 MG, UNK
     Route: 051
     Dates: start: 20170126, end: 20170126
  4. NYCODENT SALIVA [Concomitant]
     Dosage: 2 SPRAYS IN THE MOUTH BEFORE ANESTHESIA
     Route: 048
     Dates: start: 20170126, end: 20170126
  5. SYMBICORT [Concomitant]
     Active Substance: BUDESONIDE\FORMOTEROL FUMARATE DIHYDRATE
     Dosage: UNK
  6. REMIFENTANIL [Concomitant]
     Active Substance: REMIFENTANIL
     Dosage: .5 MG, UNK
     Dates: start: 20170126, end: 20170126
  7. CHLORHEXIDINE [Suspect]
     Active Substance: CHLORHEXIDINE
     Indication: INFECTION PROPHYLAXIS
     Dosage: UNK
     Dates: start: 20170126, end: 20170126
  8. CETIRIZINE [Concomitant]
     Active Substance: CETIRIZINE HYDROCHLORIDE

REACTIONS (1)
  - Anaphylactic reaction [Recovered/Resolved]

NARRATIVE: CASE EVENT DATE: 20170126
